FAERS Safety Report 12543727 (Version 1)
Quarter: 2016Q3

REPORT INFORMATION
  Report Type: Spontaneous
  Country: CA (occurrence: CA)
  Receive Date: 20160711
  Receipt Date: 20160711
  Transmission Date: 20161109
  Serious: No
  Sender: FDA-Public Use
  Company Number: CA-JAZZ-2016-CA-000223

PATIENT
  Sex: Female

DRUGS (2)
  1. XYREM [Suspect]
     Active Substance: SODIUM OXYBATE
     Dosage: 7.5 G
     Route: 048
     Dates: start: 20151230
  2. XYREM [Suspect]
     Active Substance: SODIUM OXYBATE
     Indication: PRODUCT USED FOR UNKNOWN INDICATION
     Dosage: 6 G
     Route: 048
     Dates: start: 20151217, end: 2015

REACTIONS (2)
  - Drug ineffective [Unknown]
  - Headache [Not Recovered/Not Resolved]
